FAERS Safety Report 24242311 (Version 1)
Quarter: 2024Q3

REPORT INFORMATION
  Report Type: Spontaneous
  Country: CA (occurrence: None)
  Receive Date: 20240823
  Receipt Date: 20240823
  Transmission Date: 20241016
  Serious: Yes (Other)
  Sender: ORION
  Company Number: CA-PFIZER INC-202400240122

PATIENT
  Age: 3 Decade
  Sex: Male

DRUGS (2)
  1. METHOTREXATE [Suspect]
     Active Substance: METHOTREXATE
     Indication: Crohn^s disease
  2. STELARA [Suspect]
     Active Substance: USTEKINUMAB
     Indication: Crohn^s disease

REACTIONS (4)
  - C-reactive protein increased [Recovered/Resolved]
  - Faecal calprotectin increased [Recovered/Resolved]
  - Small intestinal stenosis [Recovered/Resolved]
  - Product use in unapproved indication [Unknown]
